FAERS Safety Report 18611749 (Version 1)
Quarter: 2020Q4

REPORT INFORMATION
  Report Type: Spontaneous
  Country: US (occurrence: US)
  Receive Date: 20201213
  Receipt Date: 20201213
  Transmission Date: 20210114
  Serious: No
  Sender: FDA-Public Use
  Company Number: None

PATIENT
  Age: 58 Year
  Sex: Male
  Weight: 76.5 kg

DRUGS (10)
  1. METOPROLOL. [Concomitant]
     Active Substance: METOPROLOL
  2. FLOMAX [Concomitant]
     Active Substance: TAMSULOSIN HYDROCHLORIDE
  3. CHLORTRIMETON [Concomitant]
     Active Substance: CHLORPHENIRAMINE MALEATE
  4. FISH OIL [Concomitant]
     Active Substance: FISH OIL
  5. BROMELANOTIDE/TADALAFIL/ OXYTOCIN COMPOUNDED SUBLINGUAL TABLET [Suspect]
     Active Substance: BREMELANOTIDE\OXYTOCIN\TADALAFIL
     Indication: SEXUAL DYSFUNCTION
     Dosage: ?          QUANTITY:1 TABLET(S);?
     Route: 060
     Dates: start: 20200630, end: 20201031
  6. SILDENAFIL. [Concomitant]
     Active Substance: SILDENAFIL
  7. ALLEGRA [Concomitant]
     Active Substance: FEXOFENADINE HYDROCHLORIDE
  8. MULTIVITAMIN [Concomitant]
     Active Substance: VITAMINS
  9. BROMELANOTIDE/TADALAFIL/ OXYTOCIN COMPOUNDED SUBLINGUAL TABLET [Suspect]
     Active Substance: BREMELANOTIDE\OXYTOCIN\TADALAFIL
     Indication: ERECTILE DYSFUNCTION
     Dosage: ?          QUANTITY:1 TABLET(S);?
     Route: 060
     Dates: start: 20200630, end: 20201031
  10. ASPIRIN. [Concomitant]
     Active Substance: ASPIRIN

REACTIONS (4)
  - Nausea [None]
  - Suspected product quality issue [None]
  - Headache [None]
  - Drug ineffective [None]

NARRATIVE: CASE EVENT DATE: 20201031
